FAERS Safety Report 4282603-0 (Version None)
Quarter: 2004Q1

REPORT INFORMATION
  Report Type: 
  Country: None (occurrence: None)
  Receive Date: 20040130
  Receipt Date: 20021210
  Transmission Date: 20041129
  Serious: No
  Sender: FDA-Public Use
  Company Number: US-BRISTOL-MYERS SQUIBB COMPANY-12133344

PATIENT
  Sex: Male
  Weight: 83 kg

DRUGS (5)
  1. SERZONE [Suspect]
     Indication: DEPRESSED MOOD
     Dosage: 50MG MAR-2002,INCREASED TO 75MG SUMMER 2002,INCREASED TO 100MG DAILY OCT-2002;LAST DOSE 9-DEC-2002
     Route: 048
     Dates: start: 20020301
  2. LIPITOR [Concomitant]
     Dosage: ^5+ YEARS^
  3. RYTHMOL [Concomitant]
     Indication: ATRIAL FIBRILLATION
  4. HYDROCHLOROTHIAZIDE [Concomitant]
     Indication: BLOOD PRESSURE
  5. ASPIRIN [Concomitant]
     Dosage: ^10-15 YEARS^

REACTIONS (2)
  - ALANINE AMINOTRANSFERASE INCREASED [None]
  - ASPARTATE AMINOTRANSFERASE INCREASED [None]
